FAERS Safety Report 4363789-6 (Version None)
Quarter: 2004Q2

REPORT INFORMATION
  Report Type: 
  Country: None (occurrence: None)
  Receive Date: 20040524
  Receipt Date: 20011113
  Transmission Date: 20050107
  Serious: Yes (Disabling)
  Sender: FDA-Public Use
  Company Number: FR-MERCK-01116066

PATIENT
  Age: 45 Year
  Sex: Male

DRUGS (4)
  1. CRIXIVAN [Suspect]
     Indication: HIV INFECTION
     Route: 048
     Dates: start: 19970201, end: 19980701
  2. LAMIVUDINE [Concomitant]
     Indication: HIV INFECTION
     Route: 048
     Dates: start: 19960101, end: 20011002
  3. STAVUDINE [Concomitant]
     Indication: HIV INFECTION
     Route: 048
     Dates: start: 19960101, end: 20011002
  4. CRIXIVAN [Suspect]
     Route: 048
     Dates: start: 19980915, end: 20011002

REACTIONS (6)
  - IMPAIRED DRIVING ABILITY [None]
  - LYMPH GLAND INFECTION [None]
  - MACULOPATHY [None]
  - MYCOBACTERIAL INFECTION [None]
  - RETINAL DEPOSITS [None]
  - VISUAL ACUITY REDUCED [None]
